FAERS Safety Report 9447724 (Version 1)
Quarter: 2013Q3

REPORT INFORMATION
  Report Type: Spontaneous
  Country: US (occurrence: US)
  Receive Date: 20130808
  Receipt Date: 20130808
  Transmission Date: 20140515
  Serious: Yes (Death, Hospitalization)
  Sender: FDA-Public Use
  Company Number: US-JNJFOC-20130800457

PATIENT
  Age: 42 Year
  Sex: Female

DRUGS (2)
  1. DOXORUBICIN [Suspect]
     Indication: ADENOID CYSTIC CARCINOMA
     Route: 042
     Dates: start: 200205
  2. CISPLATIN [Suspect]
     Indication: ADENOID CYSTIC CARCINOMA
     Route: 065
     Dates: start: 200205

REACTIONS (4)
  - Metastatic neoplasm [Fatal]
  - Intermittent claudication [Unknown]
  - Facial paresis [Unknown]
  - Off label use [Unknown]
